APPROVED DRUG PRODUCT: LANSOPRAZOLE, AMOXICILLIN AND CLARITHROMYCIN (COPACKAGED)
Active Ingredient: AMOXICILLIN; CLARITHROMYCIN; LANSOPRAZOLE
Strength: 500MG;500MG;30MG
Dosage Form/Route: CAPSULE, TABLET, CAPSULE, DELAYED REL PELLETS;ORAL
Application: A200218 | Product #001
Applicant: ANI PHARMACEUTICALS INC
Approved: Aug 30, 2013 | RLD: No | RS: No | Type: DISCN